FAERS Safety Report 9713168 (Version 2)
Quarter: 2013Q4

REPORT INFORMATION
  Report Type: Spontaneous
  Country: US (occurrence: US)
  Receive Date: 20131126
  Receipt Date: 20131126
  Transmission Date: 20140711
  Serious: Yes (Other)
  Sender: FDA-Public Use
  Company Number: US-ASTELLAS-2013US008384

PATIENT
  Age: 62 Year
  Sex: Male

DRUGS (2)
  1. LEXISCAN [Suspect]
     Indication: ISCHAEMIA
     Dosage: 4 ML FROM 5 ML SYRINGE
     Route: 042
     Dates: start: 20130730
  2. LEXISCAN [Suspect]
     Dosage: 0.08 MG/ML, TOTAL DOSE
     Route: 042
     Dates: start: 20130731

REACTIONS (3)
  - Heart rate increased [Unknown]
  - Injection site extravasation [Unknown]
  - Flushing [Recovered/Resolved]
